FAERS Safety Report 5010147-7 (Version None)
Quarter: 2006Q2

REPORT INFORMATION
  Report Type: 
  Country: None (occurrence: None)
  Receive Date: 20060404
  Receipt Date: 20051208
  Transmission Date: 20061013
  Serious: No
  Sender: FDA-Public Use
  Company Number: US200512001831

PATIENT
  Age: 45 Year
  Sex: Male

DRUGS (2)
  1. CYMBALTA [Suspect]
     Dosage: 60 MG
  2. LEXAPRO /USA/ (ESCITALOPRAM) [Concomitant]

REACTIONS (4)
  - HYPERHIDROSIS [None]
  - NIGHTMARE [None]
  - TACHYCARDIA [None]
  - TACHYPNOEA [None]
